FAERS Safety Report 15617317 (Version 2)
Quarter: 2019Q1

REPORT INFORMATION
  Report Type: Report from Study
  Country: ES (occurrence: ES)
  Receive Date: 20181114
  Receipt Date: 20190215
  Transmission Date: 20190417
  Serious: Yes (Hospitalization)
  Sender: FDA-Public Use
  Company Number: ES-PFIZER INC-2018461964

PATIENT
  Age: 87 Year
  Sex: Female

DRUGS (10)
  1. DEANXIT [Interacting]
     Active Substance: FLUPENTIXOL DIHYDROCHLORIDE\MELITRACEN HYDROCHLORIDE
     Indication: MIXED ANXIETY AND DEPRESSIVE DISORDER
     Dosage: 1 DF, 1X/DAY (0-1-0)
     Route: 048
     Dates: start: 2007, end: 20180119
  2. SEROXAT [Interacting]
     Active Substance: PAROXETINE HYDROCHLORIDE
     Indication: MIXED ANXIETY AND DEPRESSIVE DISORDER
     Dosage: 10 MG, 1X/DAY (EVERY 24 HOURS: 0.5-0-0)
     Route: 048
     Dates: start: 2002
  3. ORFIDAL [Suspect]
     Active Substance: LORAZEPAM
     Indication: MIXED ANXIETY AND DEPRESSIVE DISORDER
     Dosage: 1 MG, 1X/DAY (0-0-1)
     Route: 048
     Dates: start: 2003
  4. DOLOCATIL [Concomitant]
     Active Substance: ACETAMINOPHEN
     Dosage: UNK, AS NEEDED
     Route: 048
  5. ZOCOR [Concomitant]
     Active Substance: SIMVASTATIN
     Dosage: 0-0-1
     Route: 048
  6. MASDIL [Concomitant]
     Active Substance: DILTIAZEM HYDROCHLORIDE
     Dosage: UNK UNK, 1X/DAY (1/24H)
     Route: 048
  7. DUPHALAC [Concomitant]
     Active Substance: LACTULOSE
     Dosage: 1-0-0
     Route: 048
  8. ACECLOFENAC [Concomitant]
     Active Substance: ACECLOFENAC
     Dosage: UNK UNK, AS NEEDED
     Route: 048
  9. FENTANYL. [Interacting]
     Active Substance: FENTANYL
     Dosage: 0.5/72H FROM 2 WEEKS.  IN CURRENT HISTORY OF DISCHARGE REPORT: ^HER PRIMARY ATTENTION DOCTOR DECREAS
     Route: 062
     Dates: start: 201712, end: 20180113
  10. ENALAPRIL [Concomitant]
     Active Substance: ENALAPRIL
     Dosage: UNK UNK, 1X/DAY (1/24H)
     Route: 048

REACTIONS (3)
  - Stupor [Recovered/Resolved]
  - Drug interaction [Recovered/Resolved]
  - Confusional state [Recovered/Resolved]

NARRATIVE: CASE EVENT DATE: 201712
